FAERS Safety Report 7802063-X (Version None)
Quarter: 2011Q4

REPORT INFORMATION
  Report Type: 
  Country: None (occurrence: None)
  Receive Date: 20111007
  Receipt Date: 20110926
  Transmission Date: 20120403
  Serious: Yes (Hospitalization)
  Sender: FDA-Public Use
  Company Number: FR-JNJFOC-20110911145

PATIENT
  Age: 17 Year
  Sex: Female

DRUGS (9)
  1. POLARAMINE [Concomitant]
     Route: 042
     Dates: start: 20110913
  2. REMICADE [Suspect]
     Dosage: 11TH INFUSION
     Route: 042
     Dates: start: 20110217
  3. REMICADE [Suspect]
     Dosage: 13TH INFUSION (DATE ALSO PROVIDED AS 13-JUN-2011)
     Route: 042
     Dates: start: 20110608
  4. HYDROCORTISONE [Concomitant]
     Indication: PREMEDICATION
     Route: 042
     Dates: start: 20091001
  5. REMICADE [Suspect]
     Dosage: 15TH INFUSION
     Route: 042
     Dates: start: 20110913
  6. REMICADE [Suspect]
     Indication: CROHN'S DISEASE
     Dosage: 14TH INFUSION
     Route: 042
     Dates: start: 20110803
  7. POLARAMINE [Concomitant]
     Indication: PREMEDICATION
     Route: 042
     Dates: start: 20110803
  8. REMICADE [Suspect]
     Dosage: 12TH INFUSION
     Route: 042
     Dates: start: 20110413
  9. REMICADE [Suspect]
     Route: 042
     Dates: start: 20091001

REACTIONS (2)
  - INFUSION RELATED REACTION [None]
  - CHEST DISCOMFORT [None]
